FAERS Safety Report 21351794 (Version 2)
Quarter: 2022Q4

REPORT INFORMATION
  Report Type: Spontaneous
  Country: JP (occurrence: JP)
  Receive Date: 20220919
  Receipt Date: 20221012
  Transmission Date: 20230113
  Serious: Yes (Other)
  Sender: FDA-Public Use
  Company Number: JP-BEH-2022149802

PATIENT
  Age: 69 Year
  Sex: Male

DRUGS (1)
  1. FIBROGAMMIN P [Suspect]
     Active Substance: FACTOR XIII CONCENTRATE (HUMAN)
     Route: 065

REACTIONS (3)
  - Arrhythmia [Recovering/Resolving]
  - White blood cell count increased [Recovering/Resolving]
  - Inflammation [Recovering/Resolving]
